FAERS Safety Report 10146822 (Version 1)
Quarter: 2014Q2

REPORT INFORMATION
  Report Type: Spontaneous
  Country: GB (occurrence: None)
  Receive Date: 20140429
  Receipt Date: 20140429
  Transmission Date: 20141212
  Serious: Yes (Hospitalization)
  Sender: FDA-Public Use
  Company Number: AUR-APL-2014-04993

PATIENT
  Age: 84 Year
  Sex: Female

DRUGS (11)
  1. LISINOPRIL (LISINOPRIL) [Suspect]
     Indication: HYPERTENSION
     Route: 048
  2. BUMETANIDE (BUMETANIDE) [Suspect]
     Indication: PRODUCT USED FOR UNKNOWN INDICATION
     Route: 048
  3. LIRAGLUTIDE (LIRAGLUTIDE) [Suspect]
     Indication: TYPE 2 DIABETES MELLITUS
     Route: 048
  4. SPIRONOLACTONE (SPIRONOLACTONE) [Suspect]
     Indication: PRODUCT USED FOR UNKNOWN INDICATION
     Route: 048
  5. TOLBUTAMIDE (TOLBUTAMIDE) [Suspect]
     Indication: TYPE 2 DIABETES MELLITUS
     Route: 048
  6. WARFARIN (WARFARIN) [Suspect]
     Indication: ATRIAL FIBRILLATION
     Route: 048
  7. ACARBOSE [Concomitant]
  8. ATORVASTATIN [Concomitant]
  9. BISOPROLOL [Concomitant]
  10. OMEPRAZOLE [Concomitant]
  11. PARACETAMOL [Concomitant]

REACTIONS (4)
  - Hypoglycaemia [None]
  - International normalised ratio increased [None]
  - Epistaxis [None]
  - Renal failure acute [None]
